FAERS Safety Report 7090791-6 (Version None)
Quarter: 2010Q4

REPORT INFORMATION
  Report Type: 
  Country: None (occurrence: None)
  Receive Date: 20101109
  Receipt Date: 20101103
  Transmission Date: 20110411
  Serious: Yes (Hospitalization)
  Sender: FDA-Public Use
  Company Number: GB-BRISTOL-MYERS SQUIBB COMPANY-15365174

PATIENT

DRUGS (2)
  1. MEGACE [Suspect]
     Indication: WEIGHT DECREASED
     Dosage: STARTED ON 160MG BD.INCREASED DOSE TO 160MG IN MORNING 320MG AT NIGHT.1DF=480 UNITS NOS
     Route: 048
  2. RETINOL [Concomitant]
     Indication: SUPPLEMENTATION THERAPY
     Route: 048

REACTIONS (4)
  - ADRENAL SUPPRESSION [None]
  - BLOOD CORTISOL DECREASED [None]
  - BLOOD TESTOSTERONE DECREASED [None]
  - INFECTION [None]
